FAERS Safety Report 11515206 (Version 2)
Quarter: 2017Q1

REPORT INFORMATION
  Report Type: Report from Study
  Country: None (occurrence: AR)
  Receive Date: 20150916
  Receipt Date: 20170107
  Transmission Date: 20170428
  Serious: Yes (Other)
  Sender: FDA-Public Use
  Company Number: AR-ABBVIE-15P-007-1463089-00

PATIENT
  Age: 52 Year
  Sex: Female

DRUGS (1)
  1. ZEMPLAR [Suspect]
     Active Substance: PARICALCITOL
     Indication: HYPERPARATHYROIDISM SECONDARY
     Route: 042
     Dates: start: 20150301

REACTIONS (1)
  - Arteriovenous fistula occlusion [Recovered/Resolved]

NARRATIVE: CASE EVENT DATE: 20150820
